FAERS Safety Report 8818269 (Version 1)
Quarter: 2012Q4

REPORT INFORMATION
  Report Type: 
  Country: US (occurrence: US)
  Receive Date: 20121001
  Receipt Date: 20121001
  Transmission Date: 20130627
  Serious: Yes (Other)
  Sender: FDA-Public Use
  Company Number: US-GLAXOSMITHKLINE-A0995497A

PATIENT
  Age: 48 Year
  Sex: Female

DRUGS (9)
  1. BENLYSTA [Suspect]
     Indication: SYSTEMIC LUPUS ERYTHEMATOSUS
     Dosage: 120MG Cyclic
     Route: 042
     Dates: start: 20120531
  2. PREDNISONE [Concomitant]
  3. OMEPRAZOLE [Concomitant]
  4. VERAPAMIL [Concomitant]
  5. DURAGESIC PATCH [Concomitant]
  6. OXYCODONE [Concomitant]
  7. NEURONTIN [Concomitant]
  8. SUPPLEMENT [Concomitant]
  9. INTESTINAL CLEANSER [Concomitant]

REACTIONS (10)
  - Systemic lupus erythematosus [Recovered/Resolved]
  - Fatigue [Recovered/Resolved]
  - Dry eye [Not Recovered/Not Resolved]
  - Dry mouth [Not Recovered/Not Resolved]
  - Weight increased [Not Recovered/Not Resolved]
  - Alopecia [Not Recovered/Not Resolved]
  - Migraine [Recovered/Resolved]
  - Pain [Recovered/Resolved]
  - Influenza like illness [Recovered/Resolved]
  - Therapeutic response unexpected [Unknown]
